FAERS Safety Report 7380229-3 (Version None)
Quarter: 2011Q1

REPORT INFORMATION
  Report Type: 
  Country: None (occurrence: None)
  Receive Date: 20110329
  Receipt Date: 20110207
  Transmission Date: 20110831
  Serious: No
  Sender: FDA-Public Use
  Company Number: A0912285A

PATIENT
  Age: 30 Year
  Sex: Male

DRUGS (4)
  1. OMNARIS [Concomitant]
  2. LEXAPRO [Concomitant]
  3. PATANASE [Concomitant]
  4. LAMICTAL [Suspect]
     Dosage: 100MG PER DAY
     Route: 048
     Dates: start: 20110117

REACTIONS (4)
  - ABDOMINAL DISTENSION [None]
  - NAUSEA [None]
  - DISCOMFORT [None]
  - FLATULENCE [None]
